FAERS Safety Report 6028796-6 (Version None)
Quarter: 2009Q1

REPORT INFORMATION
  Report Type: 
  Country: None (occurrence: None)
  Receive Date: 20090106
  Receipt Date: 20081230
  Transmission Date: 20090719
  Serious: Yes (Hospitalization)
  Sender: FDA-Public Use
  Company Number: B0552597A

PATIENT
  Age: 34 Year
  Sex: Female

DRUGS (1)
  1. AUGMENTIN '125' [Suspect]
     Dosage: 3000MG PER DAY
     Route: 048
     Dates: start: 20081101, end: 20081107

REACTIONS (2)
  - OEDEMA [None]
  - RESPIRATORY DISORDER [None]
